FAERS Safety Report 17816581 (Version 1)
Quarter: 2020Q2

REPORT INFORMATION
  Report Type: Spontaneous
  Country: US (occurrence: US)
  Receive Date: 20200522
  Receipt Date: 20200522
  Transmission Date: 20200714
  Serious: Yes (Other)
  Sender: FDA-Public Use
  Company Number: None

PATIENT
  Age: 74 Year
  Weight: 122 kg

DRUGS (3)
  1. HUMIRA [Suspect]
     Active Substance: ADALIMUMAB
     Indication: RHEUMATOID ARTHRITIS
     Route: 058
     Dates: start: 20101210
  2. METHOTREXATE TABLETS (10MG BY MOUTH ONCE WEEKLY) [Concomitant]
  3. ESTRADIOL PATCHES (0.1MG PER DAY) [Concomitant]

REACTIONS (9)
  - Product storage error [None]
  - Arthralgia [None]
  - Injection site discomfort [None]
  - Product quality issue [None]
  - Injection site extravasation [None]
  - Dysuria [None]
  - Drug ineffective [None]
  - Tooth infection [None]
  - Manufacturing product shipping issue [None]

NARRATIVE: CASE EVENT DATE: 20200331
